FAERS Safety Report 9742309 (Version 3)
Quarter: 2014Q3

REPORT INFORMATION
  Report Type: Spontaneous
  Country: IE (occurrence: IE)
  Receive Date: 20131210
  Receipt Date: 20140714
  Transmission Date: 20150326
  Serious: Yes (Death, Life-Threatening, Hospitalization, Other)
  Sender: FDA-Public Use
  Company Number: IE-ELI_LILLY_AND_COMPANY-IE201311009697

PATIENT
  Age: 17 Year
  Sex: Male

DRUGS (6)
  1. ZYPREXA [Suspect]
     Active Substance: OLANZAPINE
     Indication: PSYCHOTIC DISORDER
     Dosage: 5 MG, BID
     Route: 048
     Dates: start: 20121106
  2. DIAZEPAM. [Concomitant]
     Active Substance: DIAZEPAM
     Dosage: 5 MG, EACH EVENING
  3. DIAZEPAM. [Concomitant]
     Active Substance: DIAZEPAM
     Indication: PSYCHOTIC DISORDER
     Dosage: 2 MG, EACH MORNING
     Route: 065
  4. VENTOLIN [Concomitant]
     Active Substance: ALBUTEROL SULFATE
     Indication: ASTHMA
     Dosage: 2 DF, QD
     Route: 065
  5. ZYPREXA [Suspect]
     Active Substance: OLANZAPINE
     Dosage: 10 MG, BID
     Route: 048
     Dates: start: 201212
  6. LORAZEPAM. [Concomitant]
     Active Substance: LORAZEPAM
     Indication: PSYCHOTIC DISORDER
     Dosage: 1 MG, BID

REACTIONS (9)
  - Cardiac valve rupture [Fatal]
  - Respiratory distress [Unknown]
  - Asthenia [Unknown]
  - Cardiomyopathy [Fatal]
  - Cardiac failure congestive [Fatal]
  - Acute psychosis [Unknown]
  - Irritability [Unknown]
  - Intentional product misuse [Unknown]
  - Hepatic failure [Unknown]

NARRATIVE: CASE EVENT DATE: 201211
